FAERS Safety Report 10036207 (Version 1)
Quarter: 2014Q1

REPORT INFORMATION
  Report Type: Spontaneous
  Country: US (occurrence: US)
  Receive Date: 20140325
  Receipt Date: 20140325
  Transmission Date: 20141002
  Serious: Yes (Other)
  Sender: FDA-Public Use
  Company Number: US-PFIZER INC-2014080977

PATIENT
  Age: 47 Year
  Sex: Female
  Weight: 124.35 kg

DRUGS (6)
  1. LYRICA [Suspect]
     Indication: FIBROMYALGIA
     Dosage: 75 MG, 2X/DAY
     Route: 048
  2. LYRICA [Suspect]
     Indication: SJOGREN^S SYNDROME
  3. PLAQUENIL [Concomitant]
     Dosage: 200 MG, 2X/DAY
  4. CELLCEPT [Concomitant]
     Dosage: UNK
  5. EFFEXOR [Concomitant]
     Dosage: UNK
  6. ZOLPIDEM [Concomitant]
     Dosage: UNK

REACTIONS (4)
  - Dysarthria [Unknown]
  - Aphasia [Unknown]
  - Balance disorder [Unknown]
  - Dizziness [Unknown]
